FAERS Safety Report 19698465 (Version 1)
Quarter: 2021Q3

REPORT INFORMATION
  Report Type: Report from Study
  Country: IT (occurrence: IT)
  Receive Date: 20210813
  Receipt Date: 20210813
  Transmission Date: 20211014
  Serious: Yes (Other)
  Sender: FDA-Public Use
  Company Number: IT-TEVA-2021-IT-1940790

PATIENT
  Age: 56 Year
  Sex: Female

DRUGS (1)
  1. TICLOPIDINE [Suspect]
     Active Substance: TICLOPIDINE
     Indication: ISCHAEMIC STROKE
     Dosage: 1750 MG
     Route: 048
     Dates: start: 20210612, end: 20210612

REACTIONS (4)
  - Paraesthesia [Recovering/Resolving]
  - Spontaneous haematoma [Recovering/Resolving]
  - Drug abuse [Recovering/Resolving]
  - Nausea [Recovering/Resolving]

NARRATIVE: CASE EVENT DATE: 20210612
